FAERS Safety Report 9379892 (Version 1)
Quarter: 2013Q3

REPORT INFORMATION
  Report Type: Spontaneous
  Country: US (occurrence: US)
  Receive Date: 20130702
  Receipt Date: 20130702
  Transmission Date: 20140515
  Serious: No
  Sender: FDA-Public Use
  Company Number: US-BAYER-2013-080574

PATIENT
  Age: 93 Year
  Sex: Female
  Weight: 45.35 kg

DRUGS (5)
  1. ALEVE TABLET [Suspect]
     Dosage: 2 DF, ONCE
     Route: 048
     Dates: start: 20130624, end: 20130624
  2. RAMIPRIL [Concomitant]
  3. TORSEMIDE [Concomitant]
  4. CARVEDILOL [Concomitant]
  5. SIMVASTATIN [Concomitant]

REACTIONS (3)
  - Throat irritation [None]
  - Nausea [Not Recovered/Not Resolved]
  - Vomiting [Not Recovered/Not Resolved]
